FAERS Safety Report 4760555-4 (Version None)
Quarter: 2005Q3

REPORT INFORMATION
  Report Type: 
  Country: None (occurrence: None)
  Receive Date: 20050826
  Receipt Date: 20050222
  Transmission Date: 20060218
  Serious: Yes (Other)
  Sender: FDA-Public Use
  Company Number: USA-2005-0019062

PATIENT
  Age: 46 Year
  Sex: Male
  Weight: 86.2 kg

DRUGS (5)
  1. OXYCODONE HCL [Suspect]
  2. HEROIN (DIAMORPHINE) [Suspect]
  3. PAROXETINE HCL [Suspect]
  4. ACETAMINOPHEN [Suspect]
  5. MORPHINE [Suspect]

REACTIONS (3)
  - ACCIDENTAL OVERDOSE [None]
  - MULTIPLE DRUG OVERDOSE [None]
  - POLYSUBSTANCE ABUSE [None]
